FAERS Safety Report 5006750-0 (Version None)
Quarter: 2006Q2

REPORT INFORMATION
  Report Type: 
  Country: None (occurrence: None)
  Receive Date: 20060516
  Receipt Date: 20060503
  Transmission Date: 20061013
  Serious: Yes (Disabling, Congenital Anomaly, Other)
  Sender: FDA-Public Use
  Company Number: 2006060608

PATIENT
  Age: 44 Year
  Sex: Female

DRUGS (5)
  1. LYRICA [Suspect]
     Indication: NEURALGIA
     Dosage: 450 MG (150 MG, 3 IN 1 D), ORAL
     Route: 048
     Dates: start: 20060301
  2. NEURONTIN [Suspect]
     Indication: NEURALGIA
     Dosage: 1200 MG (400 MG, 3 IN 1 D), ORAL
     Route: 048
     Dates: start: 20040501
  3. AMITRIPTYLINE HCL [Concomitant]
  4. OXYCODONE AND ASPIRIN (ACETYLSALICYLIC ACID, OXYCODONE HYDROCHLORIDE, [Concomitant]
  5. DRUG, UNSPECIFIED [Concomitant]

REACTIONS (11)
  - ARTHRALGIA [None]
  - DRUG DISPENSING ERROR [None]
  - FACE OEDEMA [None]
  - FATIGUE [None]
  - HYPERSOMNIA [None]
  - INCORRECT DOSE ADMINISTERED [None]
  - OEDEMA [None]
  - OEDEMA PERIPHERAL [None]
  - PAIN IN EXTREMITY [None]
  - SENSATION OF HEAVINESS [None]
  - SOMNOLENCE [None]
